FAERS Safety Report 10403503 (Version 1)
Quarter: 2014Q3

REPORT INFORMATION
  Report Type: Spontaneous
  Country: FR (occurrence: FR)
  Receive Date: 20140822
  Receipt Date: 20140822
  Transmission Date: 20150326
  Serious: Yes (Other)
  Sender: FDA-Public Use
  Company Number: FR-SA-2014SA110197

PATIENT
  Age: 44 Year
  Sex: Male

DRUGS (14)
  1. LACTULOSE. [Concomitant]
     Active Substance: LACTULOSE
     Dosage: 1 DF QD OR 1 DF BID
     Route: 048
     Dates: start: 201401
  2. IMUREL [Suspect]
     Active Substance: AZATHIOPRINE SODIUM
     Indication: AUTOIMMUNE HEPATITIS
     Route: 048
     Dates: start: 20140213, end: 20140227
  3. ACUPAN [Suspect]
     Active Substance: NEFOPAM HYDROCHLORIDE
     Indication: PAIN
     Dosage: 20 MG DAILY UP TO 20 MG FOUR TIMES A DAY
     Route: 030
     Dates: start: 20140228, end: 201403
  4. LACTULOSE. [Concomitant]
     Active Substance: LACTULOSE
     Dosage: 1 DF QD OR 1 DF BID
     Route: 048
     Dates: start: 201401
  5. SERESTA [Concomitant]
     Active Substance: OXAZEPAM
     Route: 048
     Dates: start: 201401
  6. BENERVA [Concomitant]
     Active Substance: THIAMINE
     Route: 048
     Dates: start: 201401
  7. LOVENOX [Suspect]
     Active Substance: ENOXAPARIN SODIUM
     Route: 058
     Dates: start: 20140228, end: 201403
  8. BECILAN [Concomitant]
     Active Substance: PYRIDOXINE
     Route: 048
     Dates: start: 201401
  9. PARACETAMOL [Suspect]
     Active Substance: ACETAMINOPHEN
     Indication: PAIN
     Route: 048
     Dates: start: 20140228, end: 201403
  10. IMUREL [Suspect]
     Active Substance: AZATHIOPRINE SODIUM
     Indication: AUTOIMMUNE HEPATITIS
     Route: 048
     Dates: start: 20140228, end: 20140302
  11. SKENAN [Suspect]
     Active Substance: MORPHINE SULFATE
     Indication: PAIN
     Route: 048
     Dates: start: 20140226, end: 201403
  12. SOLUPRED [Concomitant]
     Active Substance: PREDNISOLONE
     Route: 048
     Dates: start: 201401, end: 20140114
  13. SOLUPRED [Concomitant]
     Active Substance: PREDNISOLONE
     Route: 048
     Dates: start: 20140115, end: 20140303
  14. SOLUPRED [Concomitant]
     Active Substance: PREDNISOLONE
     Dosage: PROGRESSIVE REDUCTION
     Route: 048
     Dates: start: 20140303, end: 20140306

REACTIONS (4)
  - Pyrexia [Recovered/Resolved]
  - Rash papular [Recovered/Resolved]
  - Pruritus [Recovered/Resolved]
  - Enanthema [Recovered/Resolved]

NARRATIVE: CASE EVENT DATE: 20140302
